FAERS Safety Report 5337931-4 (Version None)
Quarter: 2007Q2

REPORT INFORMATION
  Report Type: 
  Country: None (occurrence: None)
  Receive Date: 20070327
  Receipt Date: 20070127
  Transmission Date: 20071010
  Serious: No
  Sender: FDA-Public Use
  Company Number: 232350

PATIENT
  Age: 50 Year
  Sex: Female

DRUGS (1)
  1. AVASTIN [Suspect]
     Indication: PERITONEAL CARCINOMA
     Dosage: Q2W, INTRAVENOUS
     Route: 042

REACTIONS (3)
  - CHEST PAIN [None]
  - FATIGUE [None]
  - WHITE BLOOD CELL COUNT DECREASED [None]
